FAERS Safety Report 21341161 (Version 1)
Quarter: 2022Q3

REPORT INFORMATION
  Report Type: Spontaneous
  Country: DK (occurrence: DK)
  Receive Date: 20220916
  Receipt Date: 20220916
  Transmission Date: 20221027
  Serious: Yes (Disabling)
  Sender: FDA-Public Use
  Company Number: None

PATIENT
  Age: 51 Year
  Sex: Female

DRUGS (2)
  1. PREDNISOLONE [Suspect]
     Active Substance: PREDNISOLONE
     Indication: Systemic lupus erythematosus
     Dosage: DOSAGE: GRADUALLY REDUCED FROM 14MAY2019 TO STOP OF TREATMENT , STRENGTH: UNKNOWN, UNIT DOSE : 10MG,
     Route: 048
     Dates: start: 20170515, end: 202001
  2. PREDNISOLONE [Suspect]
     Active Substance: PREDNISOLONE
     Indication: Pain
     Dosage: DOSAGE: GRADUALLY REDUCED TO 2.5MG, STRENGTH: UNKNOWN, UNIT DOSE : 20 MG, DURATION : 3YEARS
     Route: 048
     Dates: start: 20140429, end: 20170514

REACTIONS (5)
  - Weight increased [Recovering/Resolving]
  - Osteoporosis [Not Recovered/Not Resolved]
  - Alanine aminotransferase increased [Unknown]
  - Cushingoid [Unknown]
  - Type 2 diabetes mellitus [Not Recovered/Not Resolved]

NARRATIVE: CASE EVENT DATE: 20140101
